FAERS Safety Report 10057559 (Version 1)
Quarter: 2014Q2

REPORT INFORMATION
  Report Type: Spontaneous
  Country: JP (occurrence: JP)
  Receive Date: 20140404
  Receipt Date: 20140404
  Transmission Date: 20141212
  Serious: Yes (Other)
  Sender: FDA-Public Use
  Company Number: PHHY2014JP039196

PATIENT
  Sex: Female

DRUGS (10)
  1. SLOW K [Suspect]
     Indication: HYPOKALAEMIA
     Dosage: 3600 MG, DAILY
     Route: 048
  2. SLOW K [Suspect]
     Dosage: 1200 MG, DAILY
     Route: 048
  3. ALDACTONE [Concomitant]
     Dosage: UNK UKN, UNK (AFTER BREAKFAST)
     Route: 048
  4. KAMAG G [Concomitant]
     Dosage: UNK UKN, UNK
     Route: 048
  5. VITAMIN B2 [Concomitant]
     Dosage: UNK UKN, UNK
     Route: 048
  6. VITAMIN B6 [Concomitant]
     Dosage: UNK UKN, UNK
     Route: 048
  7. VITAMIN B12 [Concomitant]
     Dosage: UNK UKN, UNK
     Route: 048
  8. VITAMIN A [Concomitant]
     Dosage: UNK UKN, UNK
     Route: 048
  9. ASPARA [Concomitant]
     Dosage: UNK UKN, UNK
  10. PROPOLIS [Concomitant]
     Dosage: UNK UKN, UNK

REACTIONS (13)
  - Hepatitis C [Not Recovered/Not Resolved]
  - Muscle spasms [Unknown]
  - Musculoskeletal stiffness [Unknown]
  - Hypoaesthesia [Not Recovered/Not Resolved]
  - Oedema [Recovered/Resolved]
  - Nail discolouration [Unknown]
  - Haemorrhage subcutaneous [Unknown]
  - Bartter^s syndrome [Unknown]
  - Gitelman^s syndrome [Unknown]
  - Blood pressure systolic decreased [Unknown]
  - Blood potassium decreased [Unknown]
  - Normal newborn [Unknown]
  - Maternal exposure during pregnancy [Unknown]
